FAERS Safety Report 8286434-6 (Version None)
Quarter: 2012Q2

REPORT INFORMATION
  Report Type: 
  Country: None (occurrence: None)
  Receive Date: 20120411
  Receipt Date: 20120411
  Transmission Date: 20120825
  Serious: Yes (Life-Threatening, Hospitalization, Disabling, Other)
  Sender: FDA-Public Use
  Company Number: None

PATIENT
  Age: 50 Year
  Sex: Male
  Weight: 136.0791 kg

DRUGS (1)
  1. TESTOSTERONE CYPIONATE INJ [Suspect]
     Indication: ORCHIDECTOMY
     Dosage: 100MG 1/2 ML 1 X A WEEK INNER MUSCLE
     Dates: start: 20110819, end: 20120113

REACTIONS (11)
  - INJECTION SITE SWELLING [None]
  - ABDOMINAL PAIN [None]
  - CONTUSION [None]
  - INJECTION SITE ERYTHEMA [None]
  - INJECTION SITE REACTION [None]
  - PRODUCT QUALITY ISSUE [None]
  - INJECTION SITE PAIN [None]
  - POLYCYTHAEMIA [None]
  - MUSCLE SPASMS [None]
  - SWELLING [None]
  - HAEMOCHROMATOSIS [None]
